FAERS Safety Report 8854212 (Version 1)
Quarter: 2012Q4

REPORT INFORMATION
  Report Type: Spontaneous
  Country: US (occurrence: None)
  Receive Date: 20121022
  Receipt Date: 20121022
  Transmission Date: 20130627
  Serious: Yes (Other)
  Sender: FDA-Public Use
  Company Number: None

PATIENT
  Age: 68 Year
  Sex: Male
  Weight: 122.47 kg

DRUGS (2)
  1. MONTELUKAST [Suspect]
     Indication: MULTIPLE ALLERGIES
     Dosage: 10 mg 1 Daily PO
     Route: 048
     Dates: start: 20120917, end: 20121018
  2. MONTELUKAST [Suspect]
     Indication: ALLERGIC RHINITIS
     Dosage: 10 mg 1 Daily PO
     Route: 048
     Dates: start: 20120917, end: 20121018

REACTIONS (4)
  - Dyspnoea [None]
  - Hot flush [None]
  - Tremor [None]
  - Abdominal discomfort [None]
